FAERS Safety Report 6727673-2 (Version None)
Quarter: 2010Q2

REPORT INFORMATION
  Report Type: 
  Country: None (occurrence: None)
  Receive Date: 20100512
  Receipt Date: 20100309
  Transmission Date: 20101027
  Serious: No
  Sender: FDA-Public Use
  Company Number: 1000011764

PATIENT
  Age: 53 Year
  Sex: Female

DRUGS (10)
  1. SAVELLA [Suspect]
     Indication: INTERVERTEBRAL DISC DEGENERATION
     Dosage: 12.5 MG (12.5 MG, 1 IN 1 D), ORAL ; 25 MG (12.5 MG, 2 IN 1 D), ORAL
     Route: 048
     Dates: start: 20100115, end: 20100115
  2. SAVELLA [Suspect]
     Indication: INTERVERTEBRAL DISC DEGENERATION
     Dosage: 12.5 MG (12.5 MG, 1 IN 1 D), ORAL ; 25 MG (12.5 MG, 2 IN 1 D), ORAL
     Route: 048
     Dates: start: 20100116, end: 20100117
  3. SAVELLA [Suspect]
     Indication: INTERVERTEBRAL DISC DEGENERATION
     Dosage: 50 MG (25 MG, 2 IN 1 D), ORAL
     Route: 048
     Dates: start: 20100118, end: 20100119
  4. OXYCONTIN [Concomitant]
  5. ALPRAZOLAM [Concomitant]
  6. NEURONTIN [Concomitant]
  7. TOPAMAX [Concomitant]
  8. ASPIRIN [Concomitant]
  9. PROVENTIL [Concomitant]
  10. ASMANEX TWISTHALER [Concomitant]

REACTIONS (2)
  - PRURITUS [None]
  - URTICARIA [None]
